FAERS Safety Report 4559548-1 (Version None)
Quarter: 2005Q1

REPORT INFORMATION
  Report Type: 
  Country: None (occurrence: None)
  Receive Date: 20050124
  Receipt Date: 20050120
  Transmission Date: 20050727
  Serious: Yes (Hospitalization)
  Sender: FDA-Public Use
  Company Number: FR-GLAXOSMITHKLINE-B0365096A

PATIENT
  Age: 5 Month
  Sex: Female

DRUGS (1)
  1. CLAMOXYL [Suspect]
     Route: 048
     Dates: start: 20041120, end: 20041120

REACTIONS (4)
  - ACCIDENTAL OVERDOSE [None]
  - ERYTHEMA [None]
  - GASTROINTESTINAL DISORDER [None]
  - MEDICATION ERROR [None]
